FAERS Safety Report 6385096-2 (Version None)
Quarter: 2009Q4

REPORT INFORMATION
  Report Type: 
  Country: None (occurrence: None)
  Receive Date: 20091002
  Receipt Date: 20090924
  Transmission Date: 20100525
  Serious: Yes (Hospitalization)
  Sender: FDA-Public Use
  Company Number: US-WYE-H10707009

PATIENT
  Sex: Female
  Weight: 63.56 kg

DRUGS (3)
  1. PREMARIN [Suspect]
     Indication: VULVOVAGINAL DRYNESS
     Dosage: 2GM
     Route: 067
     Dates: start: 20080801
  2. PREMARIN [Suspect]
     Indication: ATROPHIC VULVOVAGINITIS
     Route: 067
     Dates: start: 20090301
  3. KLONOPIN [Concomitant]
     Dosage: 2-1 MG TABLETS DAILY
     Route: 065
     Dates: start: 20050101

REACTIONS (9)
  - EMOTIONAL DISORDER [None]
  - FEELING ABNORMAL [None]
  - GARDNERELLA INFECTION [None]
  - GENITAL DISCOMFORT [None]
  - GENITAL ERYTHEMA [None]
  - HYPERSENSITIVITY [None]
  - PERINEAL PAIN [None]
  - PRURITUS GENITAL [None]
  - VULVOVAGINAL MYCOTIC INFECTION [None]
